FAERS Safety Report 18072186 (Version 1)
Quarter: 2020Q3

REPORT INFORMATION
  Report Type: Spontaneous
  Country: US (occurrence: US)
  Receive Date: 20200727
  Receipt Date: 20200727
  Transmission Date: 20201103
  Serious: No
  Sender: FDA-Public Use
  Company Number: US-AMGEN-USASP2020118661

PATIENT
  Age: 53 Year
  Sex: Female

DRUGS (1)
  1. OTEZLA [Suspect]
     Active Substance: APREMILAST
     Indication: MELANOCYTIC NAEVUS
     Dosage: 30 MILLIGRAM
     Route: 065

REACTIONS (2)
  - Off label use [Unknown]
  - Nausea [Recovered/Resolved]
